FAERS Safety Report 8330310-7 (Version None)
Quarter: 2012Q2

REPORT INFORMATION
  Report Type: 
  Country: None (occurrence: None)
  Receive Date: 20120502
  Receipt Date: 20120419
  Transmission Date: 20120825
  Serious: Yes (Congenital Anomaly)
  Sender: FDA-Public Use
  Company Number: DE-MYLANLABS-2012S1008075

PATIENT
  Age: 0 Year
  Sex: Male
  Weight: 3.04 kg

DRUGS (9)
  1. FLUOXETINE [Suspect]
     Indication: DEPRESSION
     Dosage: 20 [MG/D (-10) ]/ TILL WK 12: 20MG/D, THEN 10 MG/D
     Route: 064
     Dates: start: 20100130
  2. FOLIC ACID [Concomitant]
     Indication: PROPHYLAXIS OF NEURAL TUBE DEFECT
     Route: 064
  3. MOVIPREP [Concomitant]
     Dosage: 27-28 GESTATIONAL WEEK
     Route: 064
  4. FLUOXETINE [Suspect]
  5. ZOLPIDEM [Concomitant]
     Route: 064
  6. RENNIE /00108001/ [Concomitant]
     Route: 064
  7. SEDACUR [Concomitant]
     Route: 064
  8. VALIUM [Concomitant]
     Dosage: 25. - GESTATIONAL WEEK
     Route: 064
  9. LEVOTHYROXINE SODIUM [Concomitant]
     Route: 064

REACTIONS (2)
  - MATERNAL EXPOSURE DURING PREGNANCY [None]
  - TRANSPOSITION OF THE GREAT VESSELS [None]
